FAERS Safety Report 4505300-2 (Version None)
Quarter: 2004Q4

REPORT INFORMATION
  Report Type: 
  Country: None (occurrence: None)
  Receive Date: 20041118
  Receipt Date: 20041118
  Transmission Date: 20050328
  Serious: Yes (Hospitalization)
  Sender: FDA-Public Use
  Company Number: None

PATIENT
  Age: 66 Year
  Weight: 75.7507 kg

DRUGS (8)
  1. IRESSA [Suspect]
     Indication: OESOPHAGEAL CARCINOMA
     Dosage: 250 MG ONCE DAY ORALLY
     Route: 048
     Dates: start: 20041006
  2. CISPLATIN [Suspect]
     Indication: OESOPHAGEAL CARCINOMA
     Dosage: 75 MG/M2
     Dates: start: 20041025
  3. FLUOROURACIL [Suspect]
     Indication: OESOPHAGEAL CARCINOMA
     Dosage: 1000 MG/M2 IV
     Route: 042
     Dates: start: 20041025
  4. CELEBREX [Concomitant]
  5. OS-CAL [Concomitant]
  6. MULTI-VITAMINS [Concomitant]
  7. VITAMIN E [Concomitant]
  8. VITAMIN [Concomitant]

REACTIONS (4)
  - DIARRHOEA [None]
  - DRUG TOXICITY [None]
  - FEBRILE NEUTROPENIA [None]
  - FREQUENT BOWEL MOVEMENTS [None]
